FAERS Safety Report 19712548 (Version 1)
Quarter: 2021Q3

REPORT INFORMATION
  Report Type: Report from Study
  Country: US (occurrence: US)
  Receive Date: 20210816
  Receipt Date: 20210816
  Transmission Date: 20211014
  Serious: No
  Sender: FDA-Public Use
  Company Number: US-SUNOVION-2020SUN004003

PATIENT
  Sex: Female

DRUGS (1)
  1. LATUDA [Suspect]
     Active Substance: LURASIDONE HYDROCHLORIDE
     Route: 048

REACTIONS (7)
  - Insomnia [Unknown]
  - Fall [Unknown]
  - Restlessness [Unknown]
  - Feeling jittery [Unknown]
  - Gingival bleeding [Unknown]
  - Tic [Unknown]
  - Memory impairment [Unknown]
